FAERS Safety Report 17135949 (Version 1)
Quarter: 2019Q4

REPORT INFORMATION
  Report Type: Report from Study
  Country: AU (occurrence: AU)
  Receive Date: 20191210
  Receipt Date: 20191210
  Transmission Date: 20200122
  Serious: Yes (Other)
  Sender: FDA-Public Use
  Company Number: AU-OTSUKA-2019_023449

PATIENT
  Age: 60 Year
  Sex: Male

DRUGS (2)
  1. TOLVAPTAN [Suspect]
     Active Substance: TOLVAPTAN
     Dosage: 15 MG, QD
     Route: 048
  2. TOLVAPTAN [Suspect]
     Active Substance: TOLVAPTAN
     Indication: CONGENITAL CYSTIC KIDNEY DISEASE
     Dosage: 45 MG, QD
     Route: 048

REACTIONS (6)
  - Mouth swelling [Unknown]
  - Glomerular filtration rate decreased [Recovering/Resolving]
  - Lip swelling [Unknown]
  - Blood creatinine increased [Recovering/Resolving]
  - Condition aggravated [Unknown]
  - Blood urea increased [Recovering/Resolving]

NARRATIVE: CASE EVENT DATE: 20190617
